FAERS Safety Report 7358481-X (Version None)
Quarter: 2011Q1

REPORT INFORMATION
  Report Type: 
  Country: None (occurrence: None)
  Receive Date: 20110317
  Receipt Date: 20110310
  Transmission Date: 20110831
  Serious: Yes (Other)
  Sender: FDA-Public Use
  Company Number: US-ELI_LILLY_AND_COMPANY-US201103004247

PATIENT
  Sex: Female

DRUGS (3)
  1. EVISTA [Suspect]
     Indication: OSTEOPENIA
     Dosage: 60 MG, DAILY (1/D)
  2. ADVAIR DISKUS 100/50 [Concomitant]
     Indication: LUNG DISORDER
  3. ASPIRIN [Concomitant]
     Dosage: 81 MG, UNK

REACTIONS (9)
  - HAEMORRHAGE [None]
  - EMPHYSEMA [None]
  - ANXIETY [None]
  - MEMORY IMPAIRMENT [None]
  - POLYP COLORECTAL [None]
  - TOOTH DISORDER [None]
  - LUNG NEOPLASM [None]
  - LUNG DISORDER [None]
  - THROAT IRRITATION [None]
